FAERS Safety Report 17964355 (Version 3)
Quarter: 2020Q3

REPORT INFORMATION
  Report Type: Spontaneous
  Country: PL (occurrence: PL)
  Receive Date: 20200630
  Receipt Date: 20200909
  Transmission Date: 20201103
  Serious: Yes (Other)
  Sender: FDA-Public Use
  Company Number: PL-MYLANLABS-2020M1060705

PATIENT
  Age: 73 Year
  Sex: Male

DRUGS (18)
  1. ENDOXAN                            /00021101/ [Suspect]
     Active Substance: CYCLOPHOSPHAMIDE
     Indication: COLORECTAL CANCER METASTATIC
     Dosage: 50 MILLIGRAM
     Route: 065
     Dates: start: 201810, end: 201903
  2. ENDOXAN                            /00021101/ [Suspect]
     Active Substance: CYCLOPHOSPHAMIDE
     Dosage: 50 MILLIGRAM
     Route: 065
     Dates: end: 201903
  3. OXALIPLATIN. [Suspect]
     Active Substance: OXALIPLATIN
     Dosage: UNK
     Route: 065
     Dates: start: 2019
  4. TAS 102 [Suspect]
     Active Substance: TIPIRACIL HYDROCHLORIDE\TRIFLURIDINE
     Indication: RECTAL CANCER
     Dosage: UNK
     Route: 065
     Dates: start: 201904
  5. PANITUMUMAB [Suspect]
     Active Substance: PANITUMUMAB
     Indication: COLORECTAL CANCER METASTATIC
     Dosage: UNK
     Route: 065
     Dates: start: 201705
  6. PANITUMUMAB [Suspect]
     Active Substance: PANITUMUMAB
     Indication: RECTAL CANCER
     Dosage: UNK
     Route: 065
     Dates: start: 201609, end: 201705
  7. FOLINIC ACID [Suspect]
     Active Substance: LEUCOVORIN
     Dosage: AT REDUCED DOSES
     Route: 065
     Dates: start: 2017, end: 201803
  8. BEVACIZUMAB. [Suspect]
     Active Substance: BEVACIZUMAB
     Indication: RECTAL CANCER
     Dosage: UNK
     Route: 065
     Dates: start: 201511
  9. CAPECITABINE. [Suspect]
     Active Substance: CAPECITABINE
     Indication: COLORECTAL CANCER METASTATIC
     Dosage: UNK
     Route: 065
     Dates: start: 2017, end: 2017
  10. FLUOROURACIL. [Suspect]
     Active Substance: FLUOROURACIL
     Indication: RECTAL CANCER
     Dosage: UNK (FOLFIRI PROGRAM AND FOLFOX REGIMEN (CONTINUED)
     Route: 065
     Dates: start: 201409
  11. IRINOTECAN [Suspect]
     Active Substance: IRINOTECAN
     Indication: RECTAL CANCER
     Dosage: UNK (FOLFIRI PROGRAM)
     Route: 065
     Dates: start: 201409
  12. TAS 102 [Suspect]
     Active Substance: TIPIRACIL HYDROCHLORIDE\TRIFLURIDINE
     Indication: COLORECTAL CANCER METASTATIC
     Dosage: UNK
     Route: 065
  13. FOLINIC ACID [Suspect]
     Active Substance: LEUCOVORIN
     Indication: RECTAL CANCER
     Dosage: FOLFIRI PROGRAM AND FOLFOX REGIMEN (CONTINUED
     Route: 065
     Dates: start: 201409
  14. FLUOROURACIL. [Suspect]
     Active Substance: FLUOROURACIL
     Dosage: AT REDUCED DOSES
     Route: 065
     Dates: start: 2017, end: 201803
  15. IRINOTECAN [Suspect]
     Active Substance: IRINOTECAN
     Dosage: AT REDUCED DOSES
     Route: 065
     Dates: start: 2017, end: 201803
  16. OXALIPLATIN. [Suspect]
     Active Substance: OXALIPLATIN
     Indication: RECTAL CANCER
     Dosage: UNK (FOLFOX CHEMOTHERAPY)
     Route: 065
     Dates: start: 201511
  17. CAPECITABINE. [Suspect]
     Active Substance: CAPECITABINE
     Dosage: 500 MILLIGRAM, TID
     Route: 065
     Dates: start: 201810, end: 201903
  18. CAPECITABINE. [Suspect]
     Active Substance: CAPECITABINE
     Dosage: 1500 MILLIGRAM
     Route: 065
     Dates: end: 201903

REACTIONS (10)
  - Disease progression [Recovered/Resolved]
  - Proteinuria [Unknown]
  - Neutropenia [Recovered/Resolved]
  - Colorectal cancer metastatic [Unknown]
  - Skin lesion [Unknown]
  - Diarrhoea [Recovered/Resolved]
  - Acne [Unknown]
  - Anaemia [Recovered/Resolved]
  - Polyneuropathy [Unknown]
  - Condition aggravated [Unknown]

NARRATIVE: CASE EVENT DATE: 2017
